FAERS Safety Report 8365149-X (Version None)
Quarter: 2012Q1

REPORT INFORMATION
  Report Type: 
  Country: None (occurrence: None)
  Receive Date: 20120323
  Receipt Date: 20111208
  Transmission Date: 20120608
  Serious: Yes (Other)
  Sender: FDA-Public Use
  Company Number: 163-21880-11112494

PATIENT
  Age: 81 Year
  Sex: Male

DRUGS (6)
  1. GLYBURIDE [Concomitant]
  2. HYDRALAZINE HCL (HYDRALAZINE HYDROCHLORIDE)(UNKNOWN) [Concomitant]
  3. ASPIRIN [Concomitant]
  4. FUROSEMIDE [Concomitant]
  5. REVLIMID [Suspect]
     Indication: MULTIPLE MYELOMA
     Dosage: 110 MG, X 21, PO
     Route: 048
     Dates: start: 20111021
  6. MULTI FOR HIM (MULTIVITAMINS)(UNKNOWN) [Concomitant]

REACTIONS (2)
  - FULL BLOOD COUNT DECREASED [None]
  - RASH [None]
